FAERS Safety Report 5259542-1 (Version None)
Quarter: 2007Q1

REPORT INFORMATION
  Report Type: 
  Country: None (occurrence: None)
  Receive Date: 20070306
  Receipt Date: 20070221
  Transmission Date: 20070707
  Serious: Yes (Hospitalization)
  Sender: FDA-Public Use
  Company Number: 237005

PATIENT
  Age: 54 Year
  Sex: Male

DRUGS (2)
  1. AVASTIN [Suspect]
     Indication: ADENOCARCINOMA PANCREAS
     Dosage: 10 MG/KG, INTRAVENOUS
     Route: 042
     Dates: start: 20061014, end: 20061111
  2. GEMCITABINE [Suspect]
     Indication: ADENOCARCINOMA PANCREAS
     Dosage: 400 MG/M2, INTRAVENOUS
     Route: 042
     Dates: start: 20061014, end: 20061118

REACTIONS (3)
  - PORTAL VEIN OCCLUSION [None]
  - RESPIRATORY FAILURE [None]
  - VASCULAR PSEUDOANEURYSM RUPTURED [None]
